FAERS Safety Report 7303966-5 (Version None)
Quarter: 2011Q1

REPORT INFORMATION
  Report Type: 
  Country: None (occurrence: None)
  Receive Date: 20110221
  Receipt Date: 20110214
  Transmission Date: 20110831
  Serious: Yes (Other)
  Sender: FDA-Public Use
  Company Number: US-ROCHE-734092

PATIENT
  Sex: Female
  Weight: 59 kg

DRUGS (4)
  1. ACCUTANE [Suspect]
     Dosage: DOSE: 40 MG DAILY
     Route: 065
     Dates: start: 19971023, end: 19980401
  2. ACCUTANE [Suspect]
     Indication: ACNE
     Dosage: DOSE: 40 MG DAILY WITH MEAL.
     Route: 065
     Dates: start: 19910412, end: 19911122
  3. LEVOTHROID [Concomitant]
  4. ACCUTANE [Suspect]
     Route: 065
     Dates: start: 19930101

REACTIONS (7)
  - DIVERTICULITIS [None]
  - INFLAMMATORY BOWEL DISEASE [None]
  - COLITIS ULCERATIVE [None]
  - GASTROINTESTINAL INJURY [None]
  - IRRITABLE BOWEL SYNDROME [None]
  - PROCTITIS [None]
  - DRY SKIN [None]
